FAERS Safety Report 5585744-0 (Version None)
Quarter: 2007Q4

REPORT INFORMATION
  Report Type: 
  Country: None (occurrence: None)
  Receive Date: 20071204
  Receipt Date: 20070406
  Transmission Date: 20080405
  Serious: Yes (Other)
  Sender: FDA-Public Use
  Company Number: 07-030

PATIENT
  Sex: Female

DRUGS (2)
  1. IBUPROFEN TABLETS [Suspect]
     Indication: BACK PAIN
     Dosage: 800 MG 1TAB 3X'S/DAY
  2. IBUPROFEN TABLETS [Suspect]

REACTIONS (1)
  - STOMACH DISCOMFORT [None]
